FAERS Safety Report 13243079 (Version 1)
Quarter: 2017Q1

REPORT INFORMATION
  Report Type: Spontaneous
  Country: DE (occurrence: DE)
  Receive Date: 20170216
  Receipt Date: 20170216
  Transmission Date: 20170428
  Serious: Yes (Congenital Anomaly, Other)
  Sender: FDA-Public Use
  Company Number: DE-MYLANLABS-2017M1009400

PATIENT

DRUGS (1)
  1. LEVETIRACETAM. [Suspect]
     Active Substance: LEVETIRACETAM
     Indication: EPILEPSY
     Dosage: 2000 [MG/D ]/ IN GW 13: DOSAGE INCREASED TO 2X1000 MG BECAUSE OF A SEIZURE
     Route: 064
     Dates: start: 20151119, end: 20160828

REACTIONS (3)
  - Syndactyly [Not Recovered/Not Resolved]
  - Foetal exposure during pregnancy [Recovered/Resolved]
  - Polydactyly [Not Recovered/Not Resolved]

NARRATIVE: CASE EVENT DATE: 20160828
